FAERS Safety Report 8681341 (Version 2)
Quarter: 2012Q4

REPORT INFORMATION
  Report Type: 
  Country: US (occurrence: US)
  Receive Date: 20120725
  Receipt Date: 20121114
  Transmission Date: 20130627
  Serious: Yes (Hospitalization, Other)
  Sender: FDA-Public Use
  Company Number: US-BAYER-2012-073271

PATIENT
  Age: 33 Year
  Sex: Female
  Weight: 66 kg

DRUGS (12)
  1. YASMIN [Suspect]
     Dosage: UNK
     Dates: start: 20020802, end: 2009
  2. YAZ [Suspect]
     Dosage: UNK
     Dates: start: 20020802, end: 2009
  3. OCELLA [Suspect]
     Dosage: UNK
     Dates: start: 20020802, end: 2009
  4. VICODIN [Concomitant]
  5. REGLAN [Concomitant]
  6. ALLEGRA [Concomitant]
  7. IMITREX [Concomitant]
  8. OLOPATADINE HYDROCHLORIDE [Concomitant]
  9. COMBIVENT [Concomitant]
  10. PULMICORT [Concomitant]
  11. CALCIUM [Concomitant]
  12. PRILOSEC [Concomitant]

REACTIONS (9)
  - Gallbladder injury [None]
  - Deep vein thrombosis [None]
  - Cholecystitis chronic [None]
  - Injury [None]
  - Pain [None]
  - Emotional distress [None]
  - General physical health deterioration [None]
  - Anxiety [None]
  - Pain [None]
